FAERS Safety Report 10882622 (Version 1)
Quarter: 2015Q1

REPORT INFORMATION
  Report Type: Spontaneous
  Country: US (occurrence: None)
  Receive Date: 20150226
  Receipt Date: 20150226
  Transmission Date: 20150721
  Serious: Yes (Hospitalization, Other)
  Sender: FDA-Public Use
  Company Number: 2752745

PATIENT
  Age: 15 Year
  Sex: Male
  Weight: 76.3 kg

DRUGS (9)
  1. A-HYDROCORT [Suspect]
     Active Substance: HYDROCORTISONE SODIUM SUCCINATE
     Indication: ANAPLASTIC LARGE-CELL LYMPHOMA
     Route: 037
     Dates: start: 20131206, end: 20131206
  2. CYCLOPHOSPHAMIDE. [Suspect]
     Active Substance: CYCLOPHOSPHAMIDE
     Indication: ANAPLASTIC LARGE-CELL LYMPHOMA
     Route: 042
     Dates: start: 20131206
  3. CRIZOTINIB [Suspect]
     Active Substance: CRIZOTINIB
     Indication: ANAPLASTIC LARGE-CELL LYMPHOMA
     Dosage: 165 MG/ M 2 MILLIGRAM(S)/SQ. METER (2 DAY)
     Route: 048
     Dates: start: 20131211
  4. CYTARABINE INJECTION (CYTARABINE) [Suspect]
     Active Substance: CYTARABINE
     Indication: ANAPLASTIC LARGE-CELL LYMPHOMA
     Dosage: PROPHASE: 15-24 MG, DAY 1
     Route: 037
     Dates: start: 20131206
  5. METHOTREXATE (METHOTREXATE SODIUM) [Suspect]
     Active Substance: METHOTREXATE SODIUM
     Indication: ANAPLASTIC LARGE-CELL LYMPHOMA
     Dosage: PROPHASE: 7.5-12 MG, DAY 1
     Route: 037
     Dates: start: 201312
  6. IFOSFAMIDE. [Suspect]
     Active Substance: IFOSFAMIDE
     Indication: ANAPLASTIC LARGE-CELL LYMPHOMA
     Route: 042
     Dates: start: 20131211, end: 20140316
  7. DOXORUBICIN HYDROCHLORIDE. [Suspect]
     Active Substance: DOXORUBICIN HYDROCHLORIDE
     Indication: ANAPLASTIC LARGE-CELL LYMPHOMA
     Route: 042
     Dates: end: 20140406
  8. ETOPOSIDE. [Suspect]
     Active Substance: ETOPOSIDE
     Indication: ANAPLASTIC LARGE-CELL LYMPHOMA
     Route: 042
     Dates: start: 20131211, end: 20140316
  9. DEXAMETHASONE. [Suspect]
     Active Substance: DEXAMETHASONE
     Indication: ANAPLASTIC LARGE-CELL LYMPHOMA
     Dosage: 5 MG/ M 2 MILLIGRAM(S)/SQ. METER (1 DAY)
     Route: 048
     Dates: start: 20131206

REACTIONS (16)
  - Pleural effusion [None]
  - Diarrhoea [None]
  - Oropharyngeal pain [None]
  - Lung infection [None]
  - Mucosal inflammation [None]
  - Oxygen saturation [None]
  - Electrocardiogram QT prolonged [None]
  - Dehydration [None]
  - Neutropenia [None]
  - Platelet count decreased [None]
  - Hypoalbuminaemia [None]
  - Drug dose omission [None]
  - Decreased appetite [None]
  - White blood cell count decreased [None]
  - Musculoskeletal disorder [None]
  - Embolism [None]

NARRATIVE: CASE EVENT DATE: 20140411
